FAERS Safety Report 4335503-1 (Version None)
Quarter: 2004Q2

REPORT INFORMATION
  Report Type: 
  Country: None (occurrence: None)
  Receive Date: 20040406
  Receipt Date: 20040323
  Transmission Date: 20050107
  Serious: Yes (Death, Hospitalization)
  Sender: FDA-Public Use
  Company Number: US-SHR-04-019541

PATIENT
  Age: 19 Year
  Sex: Male
  Weight: 61.2 kg

DRUGS (8)
  1. BETASERON [Suspect]
     Indication: MULTIPLE SCLEROSIS
     Dosage: 8 MIU, EVERY 2D, SUBCUTANEOUS
     Route: 058
     Dates: start: 20020117, end: 20031224
  2. OXYBUTYNIN CHLORIDE (OXYBUTYNIN HYDROCHLORIDE) [Concomitant]
  3. SENNA (SENNA) [Concomitant]
  4. MAGNESIUM HYDROXIDE (MAGNESIUM HYDROXIDE) [Concomitant]
  5. BISACODYL (BISACODYL) [Concomitant]
  6. MOTRIN [Concomitant]
  7. TYLENOL (CAPLET) [Concomitant]
  8. DIAZEPAM [Concomitant]

REACTIONS (12)
  - ASPIRATION [None]
  - ATHEROSCLEROSIS [None]
  - CARDIO-RESPIRATORY ARREST [None]
  - CEREBRAL ISCHAEMIA [None]
  - HEPATIC CONGESTION [None]
  - MULTIPLE SCLEROSIS RELAPSE [None]
  - PULMONARY OEDEMA [None]
  - PYREXIA [None]
  - SPLEEN CONGESTION [None]
  - STAPHYLOCOCCAL INFECTION [None]
  - TREMOR [None]
  - VOMITING [None]
